FAERS Safety Report 17911335 (Version 1)
Quarter: 2020Q2

REPORT INFORMATION
  Report Type: Spontaneous
  Country: US (occurrence: US)
  Receive Date: 20200617
  Receipt Date: 20200617
  Transmission Date: 20200714
  Serious: Yes (Hospitalization, Disabling)
  Sender: FDA-Public Use
  Company Number: None

PATIENT
  Age: 87 Year
  Sex: Female
  Weight: 54.43 kg

DRUGS (8)
  1. MESTINON [Concomitant]
     Active Substance: PYRIDOSTIGMINE BROMIDE
  2. ALMLODOPINE [Concomitant]
  3. LEVOTHYROXINE. [Concomitant]
     Active Substance: LEVOTHYROXINE
  4. TRUMADOL [Concomitant]
  5. ROSUVASTATIN. [Concomitant]
     Active Substance: ROSUVASTATIN
  6. ASA [Concomitant]
     Active Substance: ASPIRIN
  7. METAMUCIL [Concomitant]
     Active Substance: PLANTAGO SEED
  8. PRIMIDONE GENERIC FOR MYSOLINE [Suspect]
     Active Substance: PRIMIDONE
     Indication: TREMOR
     Dosage: ?          QUANTITY:30 PILLS, 1/2 PILL; - INCREASE TO 1/2 TO 2X DAILY?
     Route: 048
     Dates: start: 20200114, end: 20200209

REACTIONS (11)
  - Amnesia [None]
  - Dizziness [None]
  - Orthostatic hypotension [None]
  - Visual impairment [None]
  - Depression [None]
  - Urinary incontinence [None]
  - Decreased appetite [None]
  - Walking aid user [None]
  - Pain [None]
  - Tremor [None]
  - Vertigo [None]

NARRATIVE: CASE EVENT DATE: 20200115
